FAERS Safety Report 4669790-7 (Version None)
Quarter: 2005Q2

REPORT INFORMATION
  Report Type: 
  Country: None (occurrence: None)
  Receive Date: 20050520
  Receipt Date: 20050509
  Transmission Date: 20051028
  Serious: Yes (Hospitalization)
  Sender: FDA-Public Use
  Company Number: CEL-2005-00169-ROC

PATIENT
  Age: 14 Year
  Sex: Male
  Weight: 32 kg

DRUGS (3)
  1. METADATE CD [Suspect]
     Indication: ATTENTION DEFICIT/HYPERACTIVITY DISORDER
     Dosage: 20MG EVERY MORNING AND EVERY AFTERNOON, PER ORAL
     Route: 048
     Dates: start: 20030101
  2. SAIZEN [Suspect]
     Indication: GROWTH RETARDATION
     Dosage: 10MG QD PO
     Route: 048
     Dates: start: 20031213, end: 20040312
  3. LEXAPRO [Concomitant]

REACTIONS (8)
  - ABNORMAL BEHAVIOUR [None]
  - AGGRESSION [None]
  - CONDITION AGGRAVATED [None]
  - DEPRESSION [None]
  - EDUCATIONAL PROBLEM [None]
  - GROWTH RETARDATION [None]
  - MEDICATION ERROR [None]
  - SUICIDAL IDEATION [None]
